FAERS Safety Report 20213635 (Version 1)
Quarter: 2021Q4

REPORT INFORMATION
  Report Type: Spontaneous
  Country: JP (occurrence: JP)
  Receive Date: 20211221
  Receipt Date: 20211221
  Transmission Date: 20220304
  Serious: Yes (Other)
  Sender: FDA-Public Use
  Company Number: JP-BAYER-2021A267446

PATIENT
  Sex: Female

DRUGS (3)
  1. YAZ [Suspect]
     Active Substance: DROSPIRENONE\ETHINYL ESTRADIOL
     Indication: Premenstrual syndrome
     Route: 048
  2. YAZ [Suspect]
     Active Substance: DROSPIRENONE\ETHINYL ESTRADIOL
     Indication: Hormone level abnormal
  3. YAZ [Suspect]
     Active Substance: DROSPIRENONE\ETHINYL ESTRADIOL
     Indication: Physical deconditioning

REACTIONS (8)
  - Loss of consciousness [Recovered/Resolved]
  - Fall [None]
  - Face injury [None]
  - Head injury [None]
  - Headache [None]
  - Feeling abnormal [None]
  - Dizziness postural [None]
  - Off label use [None]

NARRATIVE: CASE EVENT DATE: 20211211
